FAERS Safety Report 17714867 (Version 2)
Quarter: 2020Q2

REPORT INFORMATION
  Report Type: Spontaneous
  Country: GB (occurrence: GB)
  Receive Date: 20200427
  Receipt Date: 20200615
  Transmission Date: 20200714
  Serious: Yes (Life-Threatening, Hospitalization, Other)
  Sender: FDA-Public Use
  Company Number: GB-BAUSCH-BL-2020-012223

PATIENT
  Age: 66 Year
  Sex: Male
  Weight: 78.01 kg

DRUGS (1)
  1. ELIDEL [Suspect]
     Active Substance: PIMECROLIMUS
     Indication: DERMATITIS ATOPIC
     Dosage: USE ONCE OR TWICE A DAY
     Route: 061
     Dates: start: 20080609, end: 20190929

REACTIONS (1)
  - Non-Hodgkin^s lymphoma [Recovered/Resolved with Sequelae]
